FAERS Safety Report 10607696 (Version 1)
Quarter: 2014Q4

REPORT INFORMATION
  Report Type: Other
  Country: BR (occurrence: BR)
  Receive Date: 20141125
  Receipt Date: 20141125
  Transmission Date: 20150529
  Serious: Yes (Other)
  Sender: FDA-Public Use
  Company Number: BR-ACTELION-A-CH2014-108515

PATIENT
  Age: 33 Year
  Sex: Female

DRUGS (2)
  1. TRACLEER [Suspect]
     Active Substance: BOSENTAN\BOSENTAN MONOHYDRATE
     Indication: PULMONARY ARTERIAL HYPERTENSION
     Route: 048
  2. CAPTOPRIL. [Concomitant]
     Active Substance: CAPTOPRIL

REACTIONS (7)
  - Macular oedema [Recovered/Resolved]
  - Iris neovascularisation [Unknown]
  - Retinal vein occlusion [Unknown]
  - Macular detachment [Recovered/Resolved]
  - Glaucoma [Unknown]
  - Retinopathy proliferative [Unknown]
  - Blindness [Recovering/Resolving]
